FAERS Safety Report 8196054-X (Version None)
Quarter: 2012Q1

REPORT INFORMATION
  Report Type: 
  Country: None (occurrence: None)
  Receive Date: 20120309
  Receipt Date: 20120305
  Transmission Date: 20120608
  Serious: No
  Sender: FDA-Public Use
  Company Number: US-BIOGENIDEC-2012BI008044

PATIENT
  Age: 54 Year
  Sex: Female

DRUGS (3)
  1. ZOLOFT [Concomitant]
     Indication: DEPRESSION
  2. TRAMADOL HCL [Concomitant]
     Indication: TREMOR
  3. TYSABRI [Suspect]
     Indication: MULTIPLE SCLEROSIS
     Route: 042
     Dates: start: 20080822

REACTIONS (3)
  - IMPATIENCE [None]
  - FATIGUE [None]
  - FRUSTRATION [None]
